FAERS Safety Report 13500406 (Version 2)
Quarter: 2017Q2

REPORT INFORMATION
  Report Type: Spontaneous
  Country: US (occurrence: US)
  Receive Date: 20170501
  Receipt Date: 20170501
  Transmission Date: 20170830
  Serious: No
  Sender: FDA-Public Use
  Company Number: US-CIPLA LTD.-2016US09952

PATIENT

DRUGS (1)
  1. TOPIRAMATE. [Suspect]
     Active Substance: TOPIRAMATE
     Indication: MIGRAINE
     Dosage: 50 MG, BID (50 MG IN THE MORNING AND 5O MG AT NIGHT)
     Route: 048
     Dates: start: 201606

REACTIONS (1)
  - Burning sensation [Not Recovered/Not Resolved]
